FAERS Safety Report 14332330 (Version 1)
Quarter: 2017Q4

REPORT INFORMATION
  Report Type: Spontaneous
  Country: US (occurrence: US)
  Receive Date: 20171228
  Receipt Date: 20171228
  Transmission Date: 20180321
  Serious: No
  Sender: FDA-Public Use
  Company Number: US-GLAXOSMITHKLINE-US2017199054

PATIENT
  Age: 74 Year
  Sex: Female

DRUGS (15)
  1. FLUTICASONE PROPIONATE NASAL SPRAY [Concomitant]
     Active Substance: FLUTICASONE PROPIONATE
  2. MONTELUKAST [Concomitant]
     Active Substance: MONTELUKAST SODIUM
  3. BACLOFEN. [Concomitant]
     Active Substance: BACLOFEN
  4. FLAXSEED [Concomitant]
     Active Substance: FLAX SEED
  5. ADVAIR DISKUS [Suspect]
     Active Substance: FLUTICASONE PROPIONATE\SALMETEROL XINAFOATE
     Indication: COUGH
     Dosage: 1 PUFF(S), BID
     Route: 055
     Dates: start: 2003
  6. CALCIUM CITRATE [Concomitant]
     Active Substance: CALCIUM CITRATE
  7. DILTIAZEM. [Concomitant]
     Active Substance: DILTIAZEM
  8. LISINOPRIL. [Concomitant]
     Active Substance: LISINOPRIL
  9. ARNUITY ELLIPTA [Suspect]
     Active Substance: FLUTICASONE FUROATE
     Indication: ASTHMA
     Dosage: 1 PUFF(S), 1D
     Route: 055
     Dates: start: 201701, end: 20171216
  10. VENTOLIN [Concomitant]
     Active Substance: ALBUTEROL SULFATE
  11. MAGNESIUM [Concomitant]
     Active Substance: MAGNESIUM
  12. OXYMETAZOLINE HYDROCHLORIDE SPRAY [Concomitant]
  13. SPIRIVA [Suspect]
     Active Substance: TIOTROPIUM BROMIDE MONOHYDRATE
     Indication: PRODUCT USED FOR UNKNOWN INDICATION
     Dosage: UNK UNK, U
     Dates: start: 201712, end: 201712
  14. RANITIDINE. [Concomitant]
     Active Substance: RANITIDINE
  15. VITAMIN B6 [Concomitant]
     Active Substance: PYRIDOXINE HYDROCHLORIDE

REACTIONS (7)
  - Drug effect decreased [Unknown]
  - Inappropriate schedule of drug administration [Unknown]
  - Chest pain [Recovered/Resolved]
  - Product use in unapproved indication [Unknown]
  - Cough [Not Recovered/Not Resolved]
  - Off label use [Unknown]
  - Wheezing [Unknown]

NARRATIVE: CASE EVENT DATE: 201712
